FAERS Safety Report 8615564-1 (Version None)
Quarter: 2012Q3

REPORT INFORMATION
  Report Type: 
  Country: None (occurrence: None)
  Receive Date: 20120823
  Receipt Date: 20120813
  Transmission Date: 20120928
  Serious: Yes (Hospitalization, Other)
  Sender: FDA-Public Use
  Company Number: PHHY2012BR071169

PATIENT
  Age: 74 Year
  Sex: Male

DRUGS (4)
  1. A/H1N1 INFLUENZA PANDEMIC VACCINE [Suspect]
     Indication: IMMUNISATION
  2. BUDESONIDE, FORMOTEROL FUMARATE [Suspect]
     Indication: CHRONIC OBSTRUCTIVE PULMONARY DISEASE
  3. FLUTICASONE PROPIONATE/SALMETEROL [Suspect]
     Dosage: 50 UG/ 250 UG, BID
  4. BAMIFYLLINE [Suspect]
     Dosage: 600 MG, UNK

REACTIONS (15)
  - LUNG NEOPLASM [None]
  - SINUSITIS [None]
  - PRODUCTIVE COUGH [None]
  - TYPE 2 DIABETES MELLITUS [None]
  - CARDIAC MURMUR [None]
  - EMPHYSEMA [None]
  - INTERSTITIAL LUNG DISEASE [None]
  - LUNG HYPERINFLATION [None]
  - FIBROSIS [None]
  - CHRONIC OBSTRUCTIVE PULMONARY DISEASE [None]
  - BRONCHIECTASIS [None]
  - SNORING [None]
  - DYSPNOEA [None]
  - PAINFUL RESPIRATION [None]
  - CHEST PAIN [None]
